FAERS Safety Report 12903849 (Version 3)
Quarter: 2017Q1

REPORT INFORMATION
  Report Type: Report from Study
  Country: CN (occurrence: CN)
  Receive Date: 20161102
  Receipt Date: 20170118
  Transmission Date: 20170428
  Serious: Yes (Other)
  Sender: FDA-Public Use
  Company Number: PHHY2015CN169445

PATIENT
  Age: 40 Year
  Sex: Male

DRUGS (3)
  1. MYFORTIC [Suspect]
     Active Substance: MYCOPHENOLATE SODIUM
     Indication: RENAL TRANSPLANT
     Dosage: UNK
     Route: 065
  2. MYCOPHENOLATE MOFETIL. [Suspect]
     Active Substance: MYCOPHENOLATE MOFETIL
     Indication: RENAL TRANSPLANT
     Dosage: 1000 MG, UNK
     Route: 065
     Dates: start: 20151029
  3. MYFORTIC [Suspect]
     Active Substance: MYCOPHENOLATE SODIUM
     Indication: IMMUNOSUPPRESSANT DRUG THERAPY
     Dosage: 720 MG, UNK
     Route: 065
     Dates: start: 20150921, end: 20151029

REACTIONS (6)
  - Hepatic function abnormal [Unknown]
  - Diabetes mellitus [Not Recovered/Not Resolved]
  - Neutrophil count increased [Unknown]
  - Eosinophil count decreased [Unknown]
  - Platelet count decreased [Unknown]
  - Haemoglobinaemia [Not Recovered/Not Resolved]

NARRATIVE: CASE EVENT DATE: 20150926
